FAERS Safety Report 16221262 (Version 1)
Quarter: 2019Q2

REPORT INFORMATION
  Report Type: Spontaneous
  Country: US (occurrence: US)
  Receive Date: 20190422
  Receipt Date: 20190422
  Transmission Date: 20190711
  Serious: No
  Sender: FDA-Public Use
  Company Number: US-ASTRAZENECA-2019SE57044

PATIENT
  Age: 842 Month
  Sex: Female
  Weight: 58.1 kg

DRUGS (4)
  1. NEFAZODONE [Concomitant]
     Active Substance: NEFAZODONE
     Indication: ANTIDEPRESSANT THERAPY
     Route: 048
     Dates: start: 2009
  2. MOVANTIK [Suspect]
     Active Substance: NALOXEGOL OXALATE
     Indication: CONSTIPATION
     Route: 048
     Dates: start: 201704
  3. LINZESS [Concomitant]
     Active Substance: LINACLOTIDE
  4. HYDROMORPHONE [Concomitant]
     Active Substance: HYDROMORPHONE
     Indication: BACK PAIN
     Route: 048
     Dates: start: 2015

REACTIONS (6)
  - Drug ineffective [Unknown]
  - Off label use [Unknown]
  - Abdominal pain upper [Unknown]
  - Product use issue [Unknown]
  - Constipation [Unknown]
  - Gastrointestinal wall abnormal [Unknown]

NARRATIVE: CASE EVENT DATE: 201810
